FAERS Safety Report 6155802-0 (Version None)
Quarter: 2009Q2

REPORT INFORMATION
  Report Type: 
  Country: None (occurrence: None)
  Receive Date: 20090413
  Receipt Date: 20090408
  Transmission Date: 20091009
  Serious: Yes (Death)
  Sender: FDA-Public Use
  Company Number: 2009SP007573

PATIENT
  Age: 47 Year
  Sex: Male

DRUGS (1)
  1. TEMODAR [Suspect]
     Indication: LYMPHOMA
     Dosage: PO
     Route: 048
     Dates: start: 20080701, end: 20090401

REACTIONS (1)
  - DEATH [None]
